FAERS Safety Report 7808072-9 (Version None)
Quarter: 2011Q4

REPORT INFORMATION
  Report Type: 
  Country: None (occurrence: None)
  Receive Date: 20111011
  Receipt Date: 20111007
  Transmission Date: 20120403
  Serious: Yes (Death, Hospitalization, Other)
  Sender: FDA-Public Use
  Company Number: GB-ASTRAZENECA-2011SE60371

PATIENT
  Age: 47 Year
  Sex: Male

DRUGS (6)
  1. PROTON PUMP INHIBITOR [Suspect]
  2. BENZODIAZEPINES [Suspect]
  3. HYDROCORTISONE [Suspect]
  4. VASOPRESSIN [Suspect]
     Route: 042
  5. PROPOFOL [Suspect]
     Route: 042
  6. MORPHINE [Suspect]

REACTIONS (4)
  - MULTI-ORGAN FAILURE [None]
  - RENAL FAILURE ACUTE [None]
  - HAEMODIALYSIS [None]
  - RHABDOMYOLYSIS [None]
